FAERS Safety Report 9440659 (Version 1)
Quarter: 2013Q3

REPORT INFORMATION
  Report Type: Spontaneous
  Country: US (occurrence: US)
  Receive Date: 20130805
  Receipt Date: 20130805
  Transmission Date: 20140515
  Serious: No
  Sender: FDA-Public Use
  Company Number: US-PFIZER INC-2013226158

PATIENT
  Sex: Male

DRUGS (3)
  1. LIPITOR [Suspect]
     Dosage: 10 MG, 1X/DAY
  2. LIPITOR [Suspect]
     Dosage: 40 MG, UNK
  3. PAROXETINE [Concomitant]
     Indication: PANIC ATTACK
     Dosage: UNK

REACTIONS (1)
  - Panic attack [Recovered/Resolved]
